FAERS Safety Report 5533492-5 (Version None)
Quarter: 2007Q4

REPORT INFORMATION
  Report Type: 
  Country: None (occurrence: None)
  Receive Date: 20071204
  Receipt Date: 20071123
  Transmission Date: 20080405
  Serious: Yes (Hospitalization, Other)
  Sender: FDA-Public Use
  Company Number: GB-PFIZER INC-2007097608

PATIENT
  Sex: Female
  Weight: 72 kg

DRUGS (5)
  1. SUTENT [Suspect]
     Indication: BREAST CANCER METASTATIC
     Route: 048
  2. DOCETAXEL [Suspect]
     Indication: BREAST CANCER METASTATIC
     Dosage: DAILY DOSE:140MG-FREQ:EVERY 3 WEEKS
     Route: 042
  3. DEXAMETHASONE [Concomitant]
     Route: 048
     Dates: start: 20071114, end: 20071116
  4. DOMPERIDONE [Concomitant]
     Route: 048
  5. ONDANSETRON [Concomitant]
     Route: 048

REACTIONS (5)
  - ABDOMINAL PAIN [None]
  - DYSPEPSIA [None]
  - DYSURIA [None]
  - NEUTROPENIC SEPSIS [None]
  - VOMITING [None]
